FAERS Safety Report 9850304 (Version 1)
Quarter: 2014Q1

REPORT INFORMATION
  Report Type: Spontaneous
  Country: HR (occurrence: HR)
  Receive Date: 20140128
  Receipt Date: 20140128
  Transmission Date: 20141002
  Serious: Yes (Hospitalization)
  Sender: FDA-Public Use
  Company Number: HR-GLAXOSMITHKLINE-B0963891A

PATIENT
  Age: 60 Year
  Sex: Male

DRUGS (1)
  1. HYCAMTIN [Suspect]
     Indication: LUNG CARCINOMA CELL TYPE UNSPECIFIED RECURRENT
     Route: 048
     Dates: start: 20130703, end: 20130707

REACTIONS (5)
  - Neutropenia [Recovered/Resolved]
  - Fatigue [Recovered/Resolved]
  - Candida infection [Recovered/Resolved]
  - Thrombocytopenia [Recovered/Resolved]
  - Haemoglobin decreased [Recovered/Resolved]
